FAERS Safety Report 24243930 (Version 1)
Quarter: 2024Q3

REPORT INFORMATION
  Report Type: Spontaneous
  Country: US (occurrence: None)
  Receive Date: 20240823
  Receipt Date: 20240823
  Transmission Date: 20241017
  Serious: Yes (Other)
  Sender: Public
  Company Number: None

PATIENT
  Age: 74 Year
  Sex: Male
  Weight: 90 kg

DRUGS (2)
  1. BUPIVACAINE [Suspect]
     Active Substance: BUPIVACAINE
     Indication: Pain
     Dosage: FREQUENCY : DAILY?
     Route: 039
     Dates: start: 20240731, end: 20240822
  2. HYDROMORPHONE [Suspect]
     Active Substance: HYDROMORPHONE
     Indication: Pain
     Dosage: FREQUENCY : DAILY?
     Route: 039
     Dates: start: 20240731, end: 20240822

REACTIONS (3)
  - Product dispensing error [None]
  - Incorrect dose administered [None]
  - Pain [None]

NARRATIVE: CASE EVENT DATE: 20240729
